FAERS Safety Report 21821764 (Version 1)
Quarter: 2023Q1

REPORT INFORMATION
  Report Type: Report from Study
  Country: CA (occurrence: CA)
  Receive Date: 20230105
  Receipt Date: 20230105
  Transmission Date: 20230418
  Serious: Yes (Other)
  Sender: FDA-Public Use
  Company Number: CA-JNJFOC-20230106529

PATIENT
  Age: 17 Year
  Sex: Male
  Weight: 118 kg

DRUGS (1)
  1. REMICADE [Suspect]
     Active Substance: INFLIXIMAB
     Indication: Colitis ulcerative
     Dosage: ON 03-JAN-2023, THE PATIENT RECEIVED 22ND INFLIXIMAB, RECOMBINANT OF 800 MG
     Route: 042
     Dates: start: 20201127

REACTIONS (1)
  - Haematochezia [Unknown]

NARRATIVE: CASE EVENT DATE: 20230102
